FAERS Safety Report 25898904 (Version 3)
Quarter: 2025Q4

REPORT INFORMATION
  Report Type: Spontaneous
  Country: JP (occurrence: JP)
  Receive Date: 20251009
  Receipt Date: 20251203
  Transmission Date: 20260117
  Serious: Yes (Other)
  Sender: GLAXOSMITHKLINE
  Company Number: JP-GSKJP-JP2025JPN126765AA

PATIENT
  Age: 87 Year
  Sex: Male

DRUGS (2)
  1. DAPRODUSTAT [Suspect]
     Active Substance: DAPRODUSTAT
     Dosage: 20 MG, QD
  2. DARBEPOETIN ALFA [Suspect]
     Active Substance: DARBEPOETIN ALFA
     Dosage: 60 ?G

REACTIONS (4)
  - Renal impairment [Unknown]
  - Chronic kidney disease [Unknown]
  - Product use issue [Unknown]
  - Off label use [Unknown]
